FAERS Safety Report 5814194-4 (Version None)
Quarter: 2008Q3

REPORT INFORMATION
  Report Type: 
  Country: None (occurrence: None)
  Receive Date: 20080715
  Receipt Date: 20080702
  Transmission Date: 20090109
  Serious: Yes (Other)
  Sender: FDA-Public Use
  Company Number: B0528684A

PATIENT
  Age: 35 Year
  Sex: Female

DRUGS (2)
  1. ARIXTRA [Suspect]
     Indication: ABORTION SPONTANEOUS
  2. IMMUNE GLOBULIN INTRAVENOUS (HUMAN) [Suspect]
     Indication: ABORTION SPONTANEOUS
     Dosage: INTRAVENOUS
     Route: 042

REACTIONS (2)
  - ABORTION SPONTANEOUS [None]
  - DRUG EXPOSURE DURING PREGNANCY [None]
